APPROVED DRUG PRODUCT: CEFADROXIL
Active Ingredient: CEFADROXIL/CEFADROXIL HEMIHYDRATE
Strength: EQ 1GM BASE
Dosage Form/Route: TABLET;ORAL
Application: A065018 | Product #001
Applicant: RANBAXY PHARMACEUTICALS INC
Approved: Apr 23, 1999 | RLD: No | RS: No | Type: DISCN